FAERS Safety Report 10334112 (Version 1)
Quarter: 2014Q3

REPORT INFORMATION
  Report Type: Spontaneous
  Country: GB (occurrence: None)
  Receive Date: 20140721
  Receipt Date: 20140721
  Transmission Date: 20150326
  Serious: Yes (Other)
  Sender: FDA-Public Use
  Company Number: AUR-APL-2014-07712

PATIENT
  Age: 54 Year
  Sex: Female
  Weight: 75.9 kg

DRUGS (16)
  1. HYDROXYZINE [Concomitant]
     Active Substance: HYDROXYZINE\HYDROXYZINE HYDROCHLORIDE
  2. PREDNISOLONE. [Concomitant]
     Active Substance: PREDNISOLONE
  3. CIPROFLOXACIN (CIPROFLOXACIN) UNKNOWN, UNKNOWN [Suspect]
     Active Substance: CIPROFLOXACIN
     Indication: PRODUCT USED FOR UNKNOWN INDICATION
     Dates: start: 20140417, end: 20140424
  4. CLOPIDOGREL [Concomitant]
     Active Substance: CLOPIDOGREL BISULFATE
  5. SOLIFENACIN [Concomitant]
     Active Substance: SOLIFENACIN
  6. DOXYCYCLINE. [Concomitant]
     Active Substance: DOXYCYCLINE
  7. FLUCONAZOLE. [Concomitant]
     Active Substance: FLUCONAZOLE
  8. LANSOPRAZOLE. [Concomitant]
     Active Substance: LANSOPRAZOLE
  9. SIMVASTATIN. [Concomitant]
     Active Substance: SIMVASTATIN
  10. TRIMETHOPRIM. [Concomitant]
     Active Substance: TRIMETHOPRIM
  11. FLUTICASONE [Concomitant]
     Active Substance: FLUTICASONE\FLUTICASONE PROPIONATE
  12. CLARITHROMYCIN. [Concomitant]
     Active Substance: CLARITHROMYCIN
  13. ADCAL /00056901/ (CARBAZOCHROME) [Concomitant]
  14. GABAPENTIN. [Concomitant]
     Active Substance: GABAPENTIN
  15. CLENIL  MODULITE (BECLOMETASONE DIPROPIONATE) [Concomitant]
  16. HYLO TEAR (HYALURONATE SODIUM) [Concomitant]

REACTIONS (5)
  - Nasal oedema [None]
  - Lip swelling [None]
  - Eyelid oedema [None]
  - Swelling face [None]
  - Rash generalised [None]

NARRATIVE: CASE EVENT DATE: 20140629
